FAERS Safety Report 4588170-6 (Version None)
Quarter: 2005Q1

REPORT INFORMATION
  Report Type: 
  Country: None (occurrence: None)
  Receive Date: 20050221
  Receipt Date: 20050211
  Transmission Date: 20050727
  Serious: Yes (Death)
  Sender: FDA-Public Use
  Company Number: US-GLAXOSMITHKLINE-A0545159A

PATIENT
  Age: 24 Year
  Sex: Male

DRUGS (6)
  1. LAMICTAL [Suspect]
     Indication: BIPOLAR DISORDER
     Route: 048
     Dates: start: 20041229
  2. KLONOPIN [Concomitant]
  3. SOMA [Concomitant]
  4. LITHIUM [Concomitant]
  5. NORCO [Concomitant]
  6. ZYPREXA [Concomitant]

REACTIONS (1)
  - DEATH [None]
